FAERS Safety Report 12883783 (Version 1)
Quarter: 2016Q4

REPORT INFORMATION
  Report Type: Spontaneous
  Country: US (occurrence: US)
  Receive Date: 20161024
  Receipt Date: 20161024
  Transmission Date: 20170207
  Serious: Yes (Life-Threatening)
  Sender: FDA-Public Use
  Company Number: None

PATIENT
  Age: 66 Year
  Sex: Male
  Weight: 80.4 kg

DRUGS (1)
  1. WARFARIN [Suspect]
     Active Substance: WARFARIN
     Indication: CEREBROVASCULAR ACCIDENT
     Dosage: MG EVERY DAY PO
     Route: 048

REACTIONS (5)
  - Haemorrhage intracranial [None]
  - Fall [None]
  - International normalised ratio increased [None]
  - Generalised tonic-clonic seizure [None]
  - Lethargy [None]

NARRATIVE: CASE EVENT DATE: 20160810
